FAERS Safety Report 20576581 (Version 2)
Quarter: 2022Q1

REPORT INFORMATION
  Report Type: Report from Study
  Country: EG (occurrence: EG)
  Receive Date: 20220310
  Receipt Date: 20220321
  Transmission Date: 20220423
  Serious: Yes (Life-Threatening, Hospitalization, Other)
  Sender: FDA-Public Use
  Company Number: EG-NOVARTISPH-NVSC2022EG053106

PATIENT
  Age: 30 Year
  Sex: Female

DRUGS (9)
  1. HYRIMOZ [Suspect]
     Active Substance: ADALIMUMAB-ADAZ
     Indication: Rheumatoid arthritis
     Dosage: 40 MG, Q2W (1 SYRINGE 40 MG EVERY OTHER WEEK FOR 6 MONTHS ONLY)
     Route: 058
     Dates: start: 20220227, end: 20220227
  2. METHOTREXATE [Concomitant]
     Active Substance: METHOTREXATE
     Indication: Rheumatoid arthritis
     Dosage: 0.5 UNK, QW (0.5 CM EVERY W EEK THEN 1CM EVERY WEEK)
     Route: 065
     Dates: start: 202102
  3. SOLUPRED [Concomitant]
     Indication: Rheumatoid arthritis
     Dosage: 5 MG, QD
     Route: 065
     Dates: start: 202102
  4. PLAQUENIL [Concomitant]
     Active Substance: HYDROXYCHLOROQUINE SULFATE
     Indication: Rheumatoid arthritis
     Dosage: 200 MG, BID
     Route: 065
     Dates: start: 202102
  5. LEFLUNOMIDE [Concomitant]
     Active Substance: LEFLUNOMIDE
     Indication: Rheumatoid arthritis
     Dosage: 20 MG, QD
     Route: 065
     Dates: start: 202110
  6. TRYPTIZOL [Concomitant]
     Active Substance: AMITRIPTYLINE HYDROCHLORIDE
     Indication: Rheumatoid arthritis
     Dosage: 10 MG, QD
     Route: 065
     Dates: start: 202106
  7. FOLIC ACID [Concomitant]
     Active Substance: FOLIC ACID
     Indication: Rheumatoid arthritis
     Dosage: 5 MG, QW (2TAB/WEEK)
     Route: 065
     Dates: start: 20220218
  8. BIOTIN [Concomitant]
     Active Substance: BIOTIN
     Indication: Rheumatoid arthritis
     Dosage: 10000 MG, QD
     Route: 065
     Dates: start: 20220218
  9. DIMRA [Concomitant]
     Indication: Muscle relaxant therapy
     Dosage: UNK UNK, BID
     Route: 065
     Dates: start: 20220218

REACTIONS (21)
  - Vaginal haemorrhage [Recovered/Resolved]
  - Uterine haematoma [Recovered/Resolved]
  - Bradycardia [Recovered/Resolved]
  - Hypotension [Recovered/Resolved]
  - Peripheral coldness [Recovered/Resolved]
  - Hypoaesthesia [Recovered/Resolved]
  - Hypoaesthesia oral [Recovered/Resolved]
  - Blood glucose decreased [Recovered/Resolved]
  - Limb discomfort [Recovered/Resolved]
  - Chills [Recovered/Resolved]
  - Dyskinesia [Recovered/Resolved]
  - Pneumonia [Recovering/Resolving]
  - Respiratory tract infection [Recovering/Resolving]
  - Cough [Recovering/Resolving]
  - Respiration abnormal [Recovering/Resolving]
  - Syncope [Recovered/Resolved]
  - Dyspnoea [Recovered/Resolved]
  - Headache [Recovered/Resolved]
  - Pyrexia [Recovered/Resolved]
  - Infusion site warmth [Recovered/Resolved]
  - Injection site erythema [Recovered/Resolved]

NARRATIVE: CASE EVENT DATE: 20220227
